FAERS Safety Report 23851427 (Version 1)
Quarter: 2024Q2

REPORT INFORMATION
  Report Type: Spontaneous
  Country: ES (occurrence: ES)
  Receive Date: 20240514
  Receipt Date: 20240514
  Transmission Date: 20240716
  Serious: Yes (Other)
  Sender: FDA-Public Use
  Company Number: ES-ROCHE-3550246

PATIENT
  Age: 74 Year
  Sex: Male

DRUGS (2)
  1. ZOLEDRONIC ACID [Suspect]
     Active Substance: ZOLEDRONIC ACID
     Indication: Neoplasm malignant
     Dosage: UNK 3 WEEKS (DATE OF MOST RECENT DOSE (4 MG) PRIOR TO AE ONSET 27/OCT/2022)
     Route: 042
     Dates: start: 20221027, end: 20221027
  2. CABAZITAXEL [Suspect]
     Active Substance: CABAZITAXEL
     Indication: Neoplasm malignant
     Dosage: UNK 3 WEEKS (DATE OF MOST RECENT DOSE (35 MG) PRIOR TO PERIPHERAL NEUROPATHY ONSET 27/OCT/2022DATE O
     Route: 042
     Dates: start: 20221027, end: 20221027

REACTIONS (2)
  - Neuropathy peripheral [Not Recovered/Not Resolved]
  - Asthenia [Recovered/Resolved]

NARRATIVE: CASE EVENT DATE: 20221115
